FAERS Safety Report 8177915-4 (Version None)
Quarter: 2012Q1

REPORT INFORMATION
  Report Type: 
  Country: None (occurrence: None)
  Receive Date: 20120126
  Receipt Date: 20111115
  Transmission Date: 20120608
  Serious: No
  Sender: FDA-Public Use
  Company Number: PHEH2011US07947

PATIENT
  Age: 3 Year
  Sex: Male

DRUGS (4)
  1. AFINITOR [Suspect]
     Indication: ASTROCYTOMA
     Dosage: 2 DF, QOD  : 3 DF, QOD
     Dates: start: 20110817
  2. AFINITOR [Suspect]
     Indication: TUBEROUS SCLEROSIS
     Dosage: 2 DF, QOD  : 3 DF, QOD
     Dates: start: 20110817
  3. AFINITOR [Suspect]
     Indication: RENAL CELL CARCINOMA
     Dosage: 2 DF, QOD  : 3 DF, QOD
     Dates: start: 20110817
  4. TRILEPTAL [Concomitant]

REACTIONS (1)
  - BLOOD COUNT ABNORMAL [None]
